FAERS Safety Report 15957261 (Version 1)
Quarter: 2019Q1

REPORT INFORMATION
  Report Type: Spontaneous
  Country: US (occurrence: US)
  Receive Date: 20190213
  Receipt Date: 20190213
  Transmission Date: 20190417
  Serious: No
  Sender: FDA-Public Use
  Company Number: None

PATIENT
  Age: 22 Year
  Sex: Male
  Weight: 51.75 kg

DRUGS (2)
  1. ELIDEL [Suspect]
     Active Substance: PIMECROLIMUS
     Indication: ECZEMA
     Dosage: ?          QUANTITY:60 APPLICATIONS;?
     Route: 061
     Dates: start: 20190213, end: 20190213
  2. VANICREAM MOISTURIZING FACE CREAM [Suspect]
     Active Substance: COSMETICS
     Indication: ECZEMA
     Route: 061
     Dates: start: 20190104

REACTIONS (2)
  - Application site pain [None]
  - Application site erythema [None]

NARRATIVE: CASE EVENT DATE: 20190213
